FAERS Safety Report 7219303-0 (Version None)
Quarter: 2011Q1

REPORT INFORMATION
  Report Type: 
  Country: None (occurrence: None)
  Receive Date: 20110111
  Receipt Date: 20091217
  Transmission Date: 20110831
  Serious: Yes (Other)
  Sender: FDA-Public Use
  Company Number: US-PFIZER INC-2009312036

PATIENT
  Sex: Female

DRUGS (1)
  1. ATGAM [Suspect]
     Indication: APLASTIC ANAEMIA
     Route: 042
     Dates: start: 20091107

REACTIONS (1)
  - SERUM SICKNESS [None]
